FAERS Safety Report 24870031 (Version 1)
Quarter: 2025Q1

REPORT INFORMATION
  Report Type: Spontaneous
  Country: DE (occurrence: DE)
  Receive Date: 20250121
  Receipt Date: 20250121
  Transmission Date: 20250408
  Serious: Yes (Other)
  Sender: TEVA
  Company Number: DE-TEVA-VS-3284431

PATIENT
  Age: 82 Year
  Sex: Female

DRUGS (2)
  1. CLOPIDOGREL [Suspect]
     Active Substance: CLOPIDOGREL BISULFATE
     Indication: Atrial fibrillation
     Route: 065
  2. ELIQUIS [Suspect]
     Active Substance: APIXABAN
     Indication: Cerebrovascular accident prophylaxis
     Dosage: DOSAGE TEXT: 2.5 MILLIGRAM, BID
     Route: 065

REACTIONS (2)
  - Haemorrhage [Recovered/Resolved]
  - Epistaxis [Recovered/Resolved]
